FAERS Safety Report 7355305-1 (Version None)
Quarter: 2011Q1

REPORT INFORMATION
  Report Type: 
  Country: None (occurrence: None)
  Receive Date: 20110316
  Receipt Date: 20110314
  Transmission Date: 20110831
  Serious: Yes (Other)
  Sender: FDA-Public Use
  Company Number: US-ROXANE LABORATORIES, INC.-2011-RO-00300RO

PATIENT
  Age: 53 Year
  Sex: Male

DRUGS (3)
  1. MYCOPHENOLATE MOFETIL [Suspect]
     Indication: GRAFT VERSUS HOST DISEASE
  2. CORTICOSTEROIDS [Suspect]
     Indication: GRAFT VERSUS HOST DISEASE
  3. TACROLIMUS [Suspect]
     Indication: GRAFT VERSUS HOST DISEASE

REACTIONS (2)
  - HUMAN PAPILLOMA VIRUS TEST POSITIVE [None]
  - SWEAT GLAND TUMOUR [None]
